FAERS Safety Report 13031879 (Version 2)
Quarter: 2016Q4

REPORT INFORMATION
  Report Type: Spontaneous
  Country: US (occurrence: US)
  Receive Date: 20161215
  Receipt Date: 20161223
  Transmission Date: 20170207
  Serious: No
  Sender: FDA-Public Use
  Company Number: US-PFIZER INC-2016570938

PATIENT
  Age: 61 Year
  Sex: Female

DRUGS (2)
  1. SUTENT [Suspect]
     Active Substance: SUNITINIB MALATE
     Dosage: 50 MG, CYCLIC(ONCE A DAY X 14DAYS)
     Route: 048
     Dates: start: 20161108, end: 20161109
  2. SUTENT [Suspect]
     Active Substance: SUNITINIB MALATE
     Indication: NEOPLASM MALIGNANT
     Dosage: 50 MG, DAILY
     Route: 048
     Dates: start: 20161107

REACTIONS (3)
  - Nausea [Unknown]
  - Product use issue [Unknown]
  - Oral pain [Unknown]

NARRATIVE: CASE EVENT DATE: 20161107
